FAERS Safety Report 5813904-X (Version None)
Quarter: 2008Q3

REPORT INFORMATION
  Report Type: 
  Country: None (occurrence: None)
  Receive Date: 20080714
  Receipt Date: 20080703
  Transmission Date: 20090109
  Serious: Yes (Hospitalization, Other)
  Sender: FDA-Public Use
  Company Number: WAES 0802USA03735

PATIENT
  Age: 68 Year
  Sex: Male
  Weight: 76.6579 kg

DRUGS (14)
  1. CAP VORINOSTAT UNK [Suspect]
     Indication: MYELODYSPLASTIC SYNDROME
     Dosage: 400 MG/DAILY/PO; 400 MG/DAILY/PO; 400 MG/DAILY/PO; 400 MG/DAILY/PO
     Route: 048
     Dates: start: 20080129, end: 20080211
  2. CAP VORINOSTAT UNK [Suspect]
     Indication: MYELODYSPLASTIC SYNDROME
     Dosage: 400 MG/DAILY/PO; 400 MG/DAILY/PO; 400 MG/DAILY/PO; 400 MG/DAILY/PO
     Route: 048
     Dates: start: 20080229, end: 20080313
  3. CAP VORINOSTAT UNK [Suspect]
     Indication: MYELODYSPLASTIC SYNDROME
     Dosage: 400 MG/DAILY/PO; 400 MG/DAILY/PO; 400 MG/DAILY/PO; 400 MG/DAILY/PO
     Route: 048
     Dates: start: 20080409, end: 20080422
  4. CAP VORINOSTAT UNK [Suspect]
     Indication: MYELODYSPLASTIC SYNDROME
     Dosage: 400 MG/DAILY/PO; 400 MG/DAILY/PO; 400 MG/DAILY/PO; 400 MG/DAILY/PO
     Route: 048
     Dates: start: 20080520, end: 20080602
  5. INFUSION (FORM) DECITABINE UNK [Suspect]
     Indication: MYELODYSPLASTIC SYNDROME
     Dosage: 39 MG/DALY/IV; 30 MG/DAILY/IV; 39 MG/DAILY/IV; 39 MG/DAILY/IV; 39 MG/DAILY/IV
     Route: 042
     Dates: start: 20080129, end: 20080202
  6. INFUSION (FORM) DECITABINE UNK [Suspect]
     Indication: MYELODYSPLASTIC SYNDROME
     Dosage: 39 MG/DALY/IV; 30 MG/DAILY/IV; 39 MG/DAILY/IV; 39 MG/DAILY/IV; 39 MG/DAILY/IV
     Route: 042
     Dates: start: 20080229, end: 20080303
  7. INFUSION (FORM) DECITABINE UNK [Suspect]
     Indication: MYELODYSPLASTIC SYNDROME
     Dosage: 39 MG/DALY/IV; 30 MG/DAILY/IV; 39 MG/DAILY/IV; 39 MG/DAILY/IV; 39 MG/DAILY/IV
     Route: 042
     Dates: start: 20080409, end: 20080413
  8. INFUSION (FORM) DECITABINE UNK [Suspect]
     Indication: MYELODYSPLASTIC SYNDROME
     Dosage: 39 MG/DALY/IV; 30 MG/DAILY/IV; 39 MG/DAILY/IV; 39 MG/DAILY/IV; 39 MG/DAILY/IV
     Route: 042
     Dates: start: 20080520, end: 20080524
  9. INFUSION (FORM) DECITABINE UNK [Suspect]
     Indication: MYELODYSPLASTIC SYNDROME
     Dosage: 39 MG/DALY/IV; 30 MG/DAILY/IV; 39 MG/DAILY/IV; 39 MG/DAILY/IV; 39 MG/DAILY/IV
     Route: 042
     Dates: start: 20080630, end: 20080703
  10. ASCROBIC ACID [Concomitant]
  11. CYANACOBALAMIN [Concomitant]
  12. FOLIC ACID [Concomitant]
  13. GARLIC [Concomitant]
  14. VITAMIN TAB [Concomitant]

REACTIONS (10)
  - ANAEMIA [None]
  - CHEST X-RAY ABNORMAL [None]
  - CHILLS [None]
  - CONSTIPATION [None]
  - FEBRILE NEUTROPENIA [None]
  - HEADACHE [None]
  - INFECTION [None]
  - INSOMNIA [None]
  - PLEURAL EFFUSION [None]
  - RHINORRHOEA [None]
